FAERS Safety Report 25064572 (Version 1)
Quarter: 2025Q1

REPORT INFORMATION
  Report Type: Spontaneous
  Country: US (occurrence: US)
  Receive Date: 20250311
  Receipt Date: 20250311
  Transmission Date: 20250408
  Serious: Yes (Life-Threatening)
  Sender: AMGEN
  Company Number: US-AMGEN-USASP2025046384

PATIENT
  Sex: Male

DRUGS (4)
  1. TEPEZZA [Suspect]
     Active Substance: TEPROTUMUMAB-TRBW
     Indication: Product used for unknown indication
     Route: 040
  2. TEPEZZA [Suspect]
     Active Substance: TEPROTUMUMAB-TRBW
     Route: 040
  3. TEPEZZA [Suspect]
     Active Substance: TEPROTUMUMAB-TRBW
     Route: 040
  4. METHIMAZOLE [Concomitant]
     Active Substance: METHIMAZOLE

REACTIONS (6)
  - Hypoacusis [Unknown]
  - Onychomadesis [Unknown]
  - Pigmentation disorder [Unknown]
  - Dry skin [Unknown]
  - Seizure [Unknown]
  - Constipation [Unknown]
